FAERS Safety Report 15993937 (Version 1)
Quarter: 2019Q1

REPORT INFORMATION
  Report Type: Spontaneous
  Country: US (occurrence: US)
  Receive Date: 20190222
  Receipt Date: 20190222
  Transmission Date: 20190418
  Serious: No
  Sender: FDA-Public Use
  Company Number: US-ASTRAZENECA-2019SE18723

PATIENT
  Sex: Male

DRUGS (1)
  1. CALQUENCE [Suspect]
     Active Substance: ACALABRUTINIB
     Indication: GRAFT INFECTION
     Dosage: UNKNOWN
     Route: 048

REACTIONS (3)
  - Product use in unapproved indication [Unknown]
  - Chest pain [Recovered/Resolved]
  - Off label use [Unknown]
